FAERS Safety Report 4286488-8 (Version None)
Quarter: 2004Q1

REPORT INFORMATION
  Report Type: 
  Country: None (occurrence: None)
  Receive Date: 20040204
  Receipt Date: 20040121
  Transmission Date: 20041129
  Serious: Yes (Hospitalization)
  Sender: FDA-Public Use
  Company Number: 234974

PATIENT
  Age: 50 Year
  Sex: Female
  Weight: 113.4 kg

DRUGS (2)
  1. NOVOLOG [Suspect]
     Indication: DIABETES MELLITUS INSULIN-DEPENDENT
     Dosage: 91.2 , IU, QD, SUBCUTANEOUS
     Route: 058
     Dates: start: 20020101
  2. MINIMED PARADIGM INSULIN PUMP [Concomitant]

REACTIONS (7)
  - ABDOMINAL PAIN UPPER [None]
  - BLOOD GLUCOSE INCREASED [None]
  - DEVICE FAILURE [None]
  - DIZZINESS [None]
  - HEADACHE [None]
  - INTESTINAL OBSTRUCTION [None]
  - MEDICATION ERROR [None]
